FAERS Safety Report 9686846 (Version 2)
Quarter: 2013Q4

REPORT INFORMATION
  Report Type: Spontaneous
  Country: IT (occurrence: IT)
  Receive Date: 20131113
  Receipt Date: 20131113
  Transmission Date: 20140711
  Serious: Yes (Hospitalization)
  Sender: FDA-Public Use
  Company Number: PHHY2013IT122303

PATIENT
  Age: 64 Year
  Sex: Female

DRUGS (2)
  1. VOLTFAST [Suspect]
     Indication: OSTEOARTHRITIS
     Dosage: UNK UKN, PRN
     Route: 048
     Dates: start: 20030101, end: 20130918
  2. ACETYLSALICYLIC ACID [Suspect]
     Dosage: 100 MG,
     Route: 048
     Dates: start: 20030101, end: 20130918

REACTIONS (3)
  - Haematoma [Recovering/Resolving]
  - Ecchymosis [Recovering/Resolving]
  - Thrombocytopenia [Recovering/Resolving]
